FAERS Safety Report 10068028 (Version 1)
Quarter: 2014Q2

REPORT INFORMATION
  Report Type: Spontaneous
  Country: US (occurrence: US)
  Receive Date: 20140409
  Receipt Date: 20140409
  Transmission Date: 20141212
  Serious: Yes (Other)
  Sender: FDA-Public Use
  Company Number: US-ASTRAZENECA-2014SE23457

PATIENT
  Age: 24 Year
  Sex: Male
  Weight: 80.3 kg

DRUGS (3)
  1. SEROQUEL [Suspect]
     Indication: BIPOLAR DISORDER
     Route: 048
  2. SEROQUEL [Suspect]
     Indication: BIPOLAR DISORDER
     Route: 048
  3. TRAZADONE [Concomitant]

REACTIONS (4)
  - Thinking abnormal [Unknown]
  - Insomnia [Unknown]
  - Sedation [Unknown]
  - Off label use [Unknown]
